FAERS Safety Report 6966381-X (Version None)
Quarter: 2010Q3

REPORT INFORMATION
  Report Type: 
  Country: None (occurrence: None)
  Receive Date: 20100903
  Receipt Date: 20100826
  Transmission Date: 20110219
  Serious: Yes (Life-Threatening, Hospitalization, Other)
  Sender: FDA-Public Use
  Company Number: CA-AMGEN-QUU434113

PATIENT
  Sex: Female

DRUGS (6)
  1. NEULASTA [Suspect]
     Indication: CHEMOTHERAPY
     Route: 058
     Dates: start: 20100602, end: 20100602
  2. DOXORUBICIN HCL [Concomitant]
     Dates: start: 20100601
  3. VINCRISTINE [Concomitant]
     Dates: start: 20100601
  4. CYTOXAN [Concomitant]
     Dates: start: 20100601
  5. PREDNISONE [Concomitant]
     Dates: start: 20100601
  6. RITUXAN [Concomitant]
     Dates: start: 20100601

REACTIONS (2)
  - ESCHERICHIA URINARY TRACT INFECTION [None]
  - FEBRILE NEUTROPENIA [None]
